FAERS Safety Report 9485373 (Version 2)
Quarter: 2013Q3

REPORT INFORMATION
  Report Type: Report from Study
  Country: CN (occurrence: CN)
  Receive Date: 20130828
  Receipt Date: 20130828
  Transmission Date: 20140515
  Serious: Yes (Other)
  Sender: FDA-Public Use
  Company Number: CN-ROCHE-1237017

PATIENT
  Age: 41 Year
  Sex: Female
  Weight: 52 kg

DRUGS (2)
  1. PEGASYS [Suspect]
     Indication: HEPATITIS C
     Route: 058
     Dates: start: 20130104, end: 201306
  2. RIBAVIRIN [Concomitant]
     Indication: HEPATITIS C
     Route: 048
     Dates: start: 20130104

REACTIONS (6)
  - White blood cell count decreased [Unknown]
  - Decreased appetite [Unknown]
  - Asthenia [Unknown]
  - Rash [Unknown]
  - Hyperaesthesia [Unknown]
  - Pain [Unknown]
